FAERS Safety Report 7086719-5 (Version None)
Quarter: 2010Q4

REPORT INFORMATION
  Report Type: 
  Country: None (occurrence: None)
  Receive Date: 20101105
  Receipt Date: 20101101
  Transmission Date: 20110411
  Serious: Yes (Other)
  Sender: FDA-Public Use
  Company Number: US-ROCHE-738141

PATIENT

DRUGS (3)
  1. CAPECITABINE [Suspect]
     Indication: HEAD AND NECK CANCER
     Route: 065
  2. CAPECITABINE [Suspect]
     Route: 065
  3. DOCETAXEL [Suspect]
     Indication: HEAD AND NECK CANCER
     Dosage: ON DAY 1, 8, 15
     Route: 042

REACTIONS (31)
  - ASPARTATE AMINOTRANSFERASE INCREASED [None]
  - DECREASED APPETITE [None]
  - DIARRHOEA [None]
  - DYSPHAGIA [None]
  - EAR, NOSE AND THROAT EXAMINATION ABNORMAL [None]
  - FATIGUE [None]
  - FEBRILE NEUTROPENIA [None]
  - GASTROINTESTINAL HAEMORRHAGE [None]
  - HAEMOGLOBIN [None]
  - HYPERGLYCAEMIA [None]
  - HYPERSENSITIVITY [None]
  - HYPONATRAEMIA [None]
  - INFECTION [None]
  - LEUKOPENIA [None]
  - LYMPHOPENIA [None]
  - MYOCARDIAL INFARCTION [None]
  - MYOCARDIAL ISCHAEMIA [None]
  - NAUSEA [None]
  - NEUTROPHIL COUNT [None]
  - ODYNOPHAGIA [None]
  - OEDEMA PERIPHERAL [None]
  - OESOPHAGITIS [None]
  - ORAL PAIN [None]
  - OROPHARYNGEAL PAIN [None]
  - PAIN IN EXTREMITY [None]
  - PALMAR-PLANTAR ERYTHRODYSAESTHESIA SYNDROME [None]
  - PHARYNGITIS [None]
  - PLATELET COUNT [None]
  - PNEUMONIA [None]
  - STOMATITIS [None]
  - VOMITING [None]
